FAERS Safety Report 9848761 (Version 1)
Quarter: 2014Q1

REPORT INFORMATION
  Report Type: Spontaneous
  Country: IT (occurrence: IT)
  Receive Date: 20140128
  Receipt Date: 20140128
  Transmission Date: 20141002
  Serious: Yes (Hospitalization)
  Sender: FDA-Public Use
  Company Number: IT-BAYER-2014-013602

PATIENT
  Age: 36 Year
  Sex: Female

DRUGS (7)
  1. ACETYLSALICYLIC ACID({=100 MG) [Suspect]
     Indication: PROPHYLAXIS
  2. INSULIN [Concomitant]
     Indication: TYPE 1 DIABETES MELLITUS
  3. METHYLDOPA [Concomitant]
     Indication: BLOOD PRESSURE MANAGEMENT
  4. LEVOTHYROXINE [Concomitant]
  5. ALPRAZOLAM [Concomitant]
  6. PAROXETINE [Concomitant]
  7. AMINO ACID [Concomitant]

REACTIONS (3)
  - Exposure during pregnancy [None]
  - Proteinuria [None]
  - Premature delivery [None]
